FAERS Safety Report 18701093 (Version 3)
Quarter: 2021Q1

REPORT INFORMATION
  Report Type: Spontaneous
  Country: US (occurrence: US)
  Receive Date: 20210105
  Receipt Date: 20210108
  Transmission Date: 20210419
  Serious: Yes (Other)
  Sender: FDA-Public Use
  Company Number: US-PFIZER INC-2020513106

PATIENT
  Age: 58 Year
  Sex: Female

DRUGS (7)
  1. TOBRAMYCIN. [Suspect]
     Active Substance: TOBRAMYCIN
     Dosage: 2.4 G, (ANTIBIOTIC SPACER CONTAINING 2.4 G TOBRAMYCIN)
  2. VANCOMYCIN HCL [Suspect]
     Active Substance: VANCOMYCIN HYDROCHLORIDE
     Dosage: 4 G (ANTIBIOTIC SPACER CONTAINING 4G VANCOMYCIN)
  3. TOBRAMYCIN. [Suspect]
     Active Substance: TOBRAMYCIN
     Indication: LOCALISED INFECTION
     Dosage: 2.4 G, (INTRAOPERATIVELY 10 ML OF RAPIDCURE LOADED WITH 2.4 G OF TOBRAMYCIN)
  4. TOBRAMYCIN. [Suspect]
     Active Substance: TOBRAMYCIN
     Dosage: 4.8 G, (20 ML OF RAPID CURE CONTAINING 4.8 G TOBRAMYCIN)
  5. VANCOMYCIN HCL [Suspect]
     Active Substance: VANCOMYCIN HYDROCHLORIDE
     Indication: LOCALISED INFECTION
     Dosage: 2 G (INTRAOPERATIVELY 10 ML OF RAPIDCURE LOADED WITH 2 G OF VANCOMYCIN)
  6. VANCOMYCIN HCL [Suspect]
     Active Substance: VANCOMYCIN HYDROCHLORIDE
     Dosage: 4 G, (20 ML OF RAPID CURE CONTAINING 4G VANCOMYCIN)
  7. CEFUROXIME. [Suspect]
     Active Substance: CEFUROXIME
     Indication: LOCALISED INFECTION
     Dosage: 3 G, (ANTIBIOTIC SPACER CONTAINING 3G CEFUROXIME)

REACTIONS (4)
  - Acute kidney injury [Unknown]
  - Antibiotic level above therapeutic [Unknown]
  - Off label use [Unknown]
  - Product use issue [Unknown]
